FAERS Safety Report 13462446 (Version 2)
Quarter: 2017Q2

REPORT INFORMATION
  Report Type: Spontaneous
  Country: JP (occurrence: JP)
  Receive Date: 20170420
  Receipt Date: 20170504
  Transmission Date: 20170830
  Serious: Yes (Life-Threatening, Other)
  Sender: FDA-Public Use
  Company Number: JP-PFIZER INC-2017160493

PATIENT
  Age: 24 Year
  Sex: Female
  Weight: 55 kg

DRUGS (25)
  1. PROPOFOL. [Suspect]
     Active Substance: PROPOFOL
     Indication: GENERAL ANAESTHESIA
     Dosage: 5.0 UG/ML, UNK
  2. SUGAMMADEX SODIUM [Concomitant]
     Active Substance: SUGAMMADEX SODIUM
     Dosage: 150 MG, UNK
  3. SUGAMMADEX SODIUM [Concomitant]
     Active Substance: SUGAMMADEX SODIUM
     Dosage: 100 MG, UNK
  4. SUGAMMADEX SODIUM [Concomitant]
     Active Substance: SUGAMMADEX SODIUM
     Dosage: 50 MG, UNK (10 MINUTES LATER, AN ADDITIONAL 50 MG OF SUGAMADEX SODIUM WAS ADMINISTERED)
  5. SUGAMMADEX SODIUM [Concomitant]
     Active Substance: SUGAMMADEX SODIUM
     Dosage: 100 MG, UNK
  6. PROPOFOL. [Suspect]
     Active Substance: PROPOFOL
     Dosage: 100 MG, UNK
  7. REMIFENTANIL [Suspect]
     Active Substance: REMIFENTANIL
     Dosage: UNK (0.1-0.25 UG/KG/MIN)
  8. REMIFENTANIL [Suspect]
     Active Substance: REMIFENTANIL
     Dosage: UNK (0.36 UG/KG/MIN)
  9. SEVOFLURANE. [Suspect]
     Active Substance: SEVOFLURANE
     Indication: GENERAL ANAESTHESIA
     Dosage: UNK
  10. NALOXONE HYDROCHLORIDE. [Concomitant]
     Active Substance: NALOXONE HYDROCHLORIDE
     Indication: RESPIRATORY DEPRESSION
     Dosage: UNK (0.02 MG^5)
  11. PROPOFOL. [Suspect]
     Active Substance: PROPOFOL
     Dosage: UNK (2.5-3.3 UG/KG/MIN)
  12. REMIFENTANIL [Suspect]
     Active Substance: REMIFENTANIL
     Indication: GENERAL ANAESTHESIA
     Dosage: UNK (0.25 UG/KG/MIN)
  13. ROCURONIUM [Suspect]
     Active Substance: ROCURONIUM BROMIDE
     Indication: GENERAL ANAESTHESIA
     Dosage: 40 MG, UNK
  14. FENTANYL. [Suspect]
     Active Substance: FENTANYL
     Indication: GENERAL ANAESTHESIA
     Dosage: 100 UG, UNK
  15. FENTANYL. [Suspect]
     Active Substance: FENTANYL
     Dosage: 50 UG, UNK (AT 45 MINUTES, 3 HOURS AND 15 MINUTES, 3 HOURS AND 40 MINUTES, AND 4 HOURS 10 MINUTES)
  16. FENTANYL. [Suspect]
     Active Substance: FENTANYL
     Dosage: 100 UG, UNK
  17. FENTANYL. [Suspect]
     Active Substance: FENTANYL
     Dosage: 50 UG, UNK (5 MINUTES AFTER START OF SURGERY)
  18. FENTANYL. [Suspect]
     Active Substance: FENTANYL
     Dosage: 25 UG, UNK (15 MINUTES AND 25 MINUTES LATER)
  19. ROCURONIUM [Suspect]
     Active Substance: ROCURONIUM BROMIDE
     Dosage: 40 MG, UNK
  20. NALOXONE HYDROCHLORIDE. [Concomitant]
     Active Substance: NALOXONE HYDROCHLORIDE
     Indication: INADEQUATE ANALGESIA
     Dosage: 0.02 MG, UNK
  21. REMIFENTANIL [Suspect]
     Active Substance: REMIFENTANIL
     Dosage: UNK (0.11-0.18 UG/KG/MIN)
  22. ROCURONIUM [Suspect]
     Active Substance: ROCURONIUM BROMIDE
     Dosage: UNK (10-15 MG WAS INTERMITTENTLY ADMINISTERED EVERY 30-40 MINUTES UNTIL 50 MINUTES)
  23. BROTIZOLAM [Concomitant]
     Active Substance: BROTIZOLAM
     Indication: INSOMNIA
     Dosage: 0.125 MG, UNK (TAKEN THE NIGHT BEFORE SURGERY)
     Route: 048
  24. BROTIZOLAM [Concomitant]
     Active Substance: BROTIZOLAM
     Indication: ANAESTHETIC PREMEDICATION
     Dosage: UNK (2 HOURS BEFORE ADMISSION TO THE OPERATING ROOM)
  25. DESFLURANE. [Concomitant]
     Active Substance: DESFLURANE
     Dosage: UNK

REACTIONS (3)
  - Coma [Recovering/Resolving]
  - Unresponsive to stimuli [Recovering/Resolving]
  - Delayed recovery from anaesthesia [Recovering/Resolving]
